FAERS Safety Report 14822036 (Version 2)
Quarter: 2018Q3

REPORT INFORMATION
  Report Type: Report from Study
  Country: US (occurrence: US)
  Receive Date: 20180427
  Receipt Date: 20180928
  Transmission Date: 20181010
  Serious: No
  Sender: FDA-Public Use
  Company Number: PHEH2018US016350

PATIENT
  Sex: Male

DRUGS (1)
  1. OMNITROPE [Suspect]
     Active Substance: SOMATROPIN
     Indication: GROWTH HORMONE DEFICIENCY
     Dosage: 1.7 MG, QD
     Route: 058

REACTIONS (11)
  - Blood glucose decreased [Unknown]
  - Hyperhidrosis [Unknown]
  - Product odour abnormal [Unknown]
  - Injection site pain [Unknown]
  - Nausea [Unknown]
  - Incorrect dose administered by device [Unknown]
  - Sleep talking [Unknown]
  - Feeling abnormal [Unknown]
  - Malaise [Unknown]
  - Hot flush [Unknown]
  - Device leakage [Unknown]
